FAERS Safety Report 21589116 (Version 1)
Quarter: 2022Q4

REPORT INFORMATION
  Report Type: Spontaneous
  Country: KR (occurrence: KR)
  Receive Date: 20221114
  Receipt Date: 20221114
  Transmission Date: 20230113
  Serious: Yes (Other)
  Sender: FDA-Public Use
  Company Number: KR-CHEPLA-2022010128

PATIENT
  Age: 52 Year
  Sex: Male

DRUGS (11)
  1. GANCICLOVIR [Suspect]
     Active Substance: GANCICLOVIR
     Indication: Cytomegalovirus chorioretinitis
     Route: 042
  2. GANCICLOVIR [Suspect]
     Active Substance: GANCICLOVIR
     Indication: Cytomegalovirus chorioretinitis
     Dosage: 2 MG/0.04CC EVERY TWO WEEKS IN HIS RIGHT EYE
     Route: 031
  3. GANCICLOVIR [Suspect]
     Active Substance: GANCICLOVIR
     Indication: Cytomegalovirus chorioretinitis
     Dosage: INTRAVITREAL USE, (2 MG/0.04CC)
     Route: 031
  4. GANCICLOVIR [Suspect]
     Active Substance: GANCICLOVIR
     Indication: Cytomegalovirus chorioretinitis
     Dosage: INTRAVITREAL USE, (2 MG/0.04CC) PERFORMED EVERY WEEK, A TOTAL OF 18 TIMES IN 18 WEEKS
     Route: 031
  5. GANCICLOVIR [Suspect]
     Active Substance: GANCICLOVIR
     Indication: Cytomegalovirus chorioretinitis
     Dosage: CMV RETINITIS IN THE LEFT EYE
     Route: 042
  6. GANCICLOVIR [Suspect]
     Active Substance: GANCICLOVIR
     Indication: Cytomegalovirus chorioretinitis
     Dosage: CMV RETINITIS IN THE LEFT EYE
     Route: 031
  7. VALGANCICLOVIR [Suspect]
     Active Substance: VALGANCICLOVIR
     Indication: Cytomegalovirus chorioretinitis
     Dosage: DAILY DOSE: 900 MILLIGRAM
     Route: 048
  8. FOSCARNET [Concomitant]
     Active Substance: FOSCARNET
     Indication: Cytomegalovirus chorioretinitis
     Dosage: IMPROVEMENT OF THE COLITIS AND CMV MRNA DISAPPEARED.
  9. FOSCARNET [Concomitant]
     Active Substance: FOSCARNET
     Indication: Cytomegalovirus colitis
     Dosage: IMPROVEMENT OF THE COLITIS AND CMV MRNA DISAPPEARED.
  10. FOSCARNET [Concomitant]
     Active Substance: FOSCARNET
     Indication: Cytomegalovirus chorioretinitis
     Dosage: WEEKLY INTRAVITREAL FOSCARNET TREATMENT (2.4 MG/0.1CC) FOR 17 WEEK
     Route: 031
  11. FOSCARNET [Concomitant]
     Active Substance: FOSCARNET
     Indication: Cytomegalovirus colitis
     Dosage: WEEKLY INTRAVITREAL FOSCARNET TREATMENT (2.4 MG/0.1CC) FOR 17 WEEK
     Route: 031

REACTIONS (5)
  - Blindness unilateral [Unknown]
  - Drug resistance [Unknown]
  - Product use issue [Unknown]
  - Product use in unapproved indication [Unknown]
  - General physical health deterioration [Unknown]
